FAERS Safety Report 23835539 (Version 1)
Quarter: 2024Q2

REPORT INFORMATION
  Report Type: Spontaneous
  Country: AU (occurrence: AU)
  Receive Date: 20240509
  Receipt Date: 20240509
  Transmission Date: 20240716
  Serious: Yes (Other)
  Sender: FDA-Public Use
  Company Number: AU-Harrow Eye-2156726

PATIENT
  Age: 53 Year

DRUGS (1)
  1. VERKAZIA [Suspect]
     Active Substance: CYCLOSPORINE
     Indication: Product used for unknown indication
     Route: 047

REACTIONS (3)
  - Corneal oedema [Not Recovered/Not Resolved]
  - Overdose [Unknown]
  - Corneal endotheliitis [Not Recovered/Not Resolved]
